FAERS Safety Report 4539916-4 (Version None)
Quarter: 2004Q4

REPORT INFORMATION
  Report Type: 
  Country: None (occurrence: None)
  Receive Date: 20041223
  Receipt Date: 20041216
  Transmission Date: 20050328
  Serious: No
  Sender: FDA-Public Use
  Company Number: 2004UW25643

PATIENT
  Age: 45 Year
  Sex: Female

DRUGS (1)
  1. ZOLADEX [Suspect]
     Indication: CHEMOTHERAPY
     Dosage: 1 Q 3 MONTHS

REACTIONS (1)
  - UTERINE PROLAPSE [None]
